FAERS Safety Report 7367636-X (Version None)
Quarter: 2011Q1

REPORT INFORMATION
  Report Type: 
  Country: None (occurrence: None)
  Receive Date: 20110322
  Receipt Date: 20100817
  Transmission Date: 20110831
  Serious: Yes (Hospitalization, Other)
  Sender: FDA-Public Use
  Company Number: US-BAYER-201018966NA

PATIENT
  Sex: Female
  Weight: 74.83 kg

DRUGS (10)
  1. ALBUTEROL [Concomitant]
  2. DOCUSATE SODIUM [Concomitant]
  3. BUDESONIDE [Concomitant]
  4. LEUCOVORIN CALCIUM [Concomitant]
  5. SYMBICORT [Concomitant]
  6. YAZ [Suspect]
     Indication: PRODUCT USED FOR UNKNOWN INDICATION
     Dosage: UNK
     Route: 048
     Dates: start: 20071001, end: 20081201
  7. ACETAMINOPHEN AND OXYCODONE HCL [Concomitant]
  8. PANTOPRAZOLE SODIUM [Concomitant]
  9. ONDANSETRON [Concomitant]
  10. IBUPROFEN [Concomitant]

REACTIONS (5)
  - DYSPNOEA [None]
  - PULMONARY EMBOLISM [None]
  - COUGH [None]
  - GESTATIONAL TROPHOBLASTIC TUMOUR [None]
  - PREGNANCY [None]
